FAERS Safety Report 8410169-X (Version None)
Quarter: 2012Q2

REPORT INFORMATION
  Report Type: 
  Country: None (occurrence: None)
  Receive Date: 20120605
  Receipt Date: 20120529
  Transmission Date: 20120825
  Serious: Yes (Death)
  Sender: FDA-Public Use
  Company Number: PHHY2012DE034183

PATIENT
  Sex: Female
  Weight: 90 kg

DRUGS (5)
  1. CITALOPRAM [Concomitant]
     Dosage: ONCE A DAY
  2. TILIDIN [Concomitant]
     Dosage: UNK
  3. KEPPRA [Concomitant]
     Dosage: UNK
  4. SANDOSTATIN LAR [Suspect]
     Dosage: UNK UKN, UNK
  5. PANTOPRAZOLE [Concomitant]
     Dosage: ONCE A DAY

REACTIONS (1)
  - NEOPLASM MALIGNANT [None]
